FAERS Safety Report 7007979-2 (Version None)
Quarter: 2010Q3

REPORT INFORMATION
  Report Type: 
  Country: None (occurrence: None)
  Receive Date: 20100922
  Receipt Date: 20100909
  Transmission Date: 20110219
  Serious: Yes (Other)
  Sender: FDA-Public Use
  Company Number: PHHY2010JP55522

PATIENT
  Sex: Female
  Weight: 48 kg

DRUGS (1)
  1. DIOVAN [Suspect]
     Dosage: 80 MG, QD
     Route: 048
     Dates: start: 20081016, end: 20090420

REACTIONS (2)
  - INTRACRANIAL ANEURYSM [None]
  - NASOPHARYNGITIS [None]
